FAERS Safety Report 8422242-0 (Version None)
Quarter: 2012Q2

REPORT INFORMATION
  Report Type: 
  Country: None (occurrence: None)
  Receive Date: 20120605
  Receipt Date: 20120523
  Transmission Date: 20120825
  Serious: Yes (Other)
  Sender: FDA-Public Use
  Company Number: GER/GER/12/0024459

PATIENT
  Age: 17 Year
  Sex: Female
  Weight: 50 kg

DRUGS (1)
  1. IBUPROFEN [Suspect]
     Indication: PRODUCT USED FOR UNKNOWN INDICATION
     Dosage: 5 DOSAGE FORMS, 1 IN 1 TOTAL, ORAL
     Route: 048

REACTIONS (2)
  - NO ADVERSE EVENT [None]
  - INTENTIONAL OVERDOSE [None]
